FAERS Safety Report 14343143 (Version 2)
Quarter: 2018Q1

REPORT INFORMATION
  Report Type: Spontaneous
  Country: US (occurrence: US)
  Receive Date: 20180102
  Receipt Date: 20180111
  Transmission Date: 20180509
  Serious: Yes (Hospitalization, Other)
  Sender: FDA-Public Use
  Company Number: US-SAOL THERAPEUTICS-2017SAO03535

PATIENT
  Age: 54 Year
  Sex: Male

DRUGS (4)
  1. BACLOFEN. [Suspect]
     Active Substance: BACLOFEN
     Indication: MUSCLE SPASTICITY
     Dosage: 193 ?G, \DAY
     Route: 037
  2. MORPHINE [Suspect]
     Active Substance: MORPHINE
     Route: 037
  3. BACLOFEN. [Suspect]
     Active Substance: BACLOFEN
     Indication: SPINAL CORD INJURY
  4. CLONIDINE. [Suspect]
     Active Substance: CLONIDINE
     Route: 037

REACTIONS (7)
  - Fall [Unknown]
  - Arthralgia [Unknown]
  - Hyperhidrosis [Unknown]
  - Hip surgery [Unknown]
  - Drug withdrawal syndrome [Unknown]
  - Respiratory distress [Unknown]
  - Complication associated with device [Unknown]

NARRATIVE: CASE EVENT DATE: 20171220
